FAERS Safety Report 11804252 (Version 1)
Quarter: 2015Q4

REPORT INFORMATION
  Report Type: Spontaneous
  Country: US (occurrence: US)
  Receive Date: 20151204
  Receipt Date: 20151204
  Transmission Date: 20160305
  Serious: No
  Sender: FDA-Public Use
  Company Number: US-BAUSCH-BL-2014-009730

PATIENT
  Age: 9 Year
  Sex: Female
  Weight: 24.97 kg

DRUGS (4)
  1. XENAZINE [Suspect]
     Active Substance: TETRABENAZINE
     Dates: start: 2013
  2. XENAZINE [Suspect]
     Active Substance: TETRABENAZINE
     Route: 048
     Dates: start: 2012
  3. XENAZINE [Suspect]
     Active Substance: TETRABENAZINE
     Route: 048
     Dates: start: 20141124
  4. XENAZINE [Suspect]
     Active Substance: TETRABENAZINE
     Indication: CEREBRAL PALSY
     Route: 048
     Dates: start: 201202

REACTIONS (4)
  - Restlessness [Recovered/Resolved]
  - Agitation [Recovered/Resolved]
  - Off label use [Recovered/Resolved]
  - Crying [Recovered/Resolved]

NARRATIVE: CASE EVENT DATE: 2012
